FAERS Safety Report 10037189 (Version 2)
Quarter: 2014Q1

REPORT INFORMATION
  Report Type: Spontaneous
  Country: US (occurrence: US)
  Receive Date: 20140326
  Receipt Date: 20140331
  Transmission Date: 20141002
  Serious: No
  Sender: FDA-Public Use
  Company Number: US-009507513-1403USA011752

PATIENT
  Age: 32 Year
  Sex: Male

DRUGS (1)
  1. PROPECIA [Suspect]
     Indication: ANDROGENETIC ALOPECIA
     Dosage: 1 MG, ONE TABLET DAILY
     Route: 048
     Dates: start: 200006, end: 201102

REACTIONS (4)
  - Blood follicle stimulating hormone decreased [Unknown]
  - Adverse event [Unknown]
  - Infertility [Unknown]
  - Sexual dysfunction [Unknown]
